FAERS Safety Report 6034468-4 (Version None)
Quarter: 2009Q1

REPORT INFORMATION
  Report Type: 
  Country: None (occurrence: None)
  Receive Date: 20090109
  Receipt Date: 20090109
  Transmission Date: 20090719
  Serious: Yes (Death)
  Sender: FDA-Public Use
  Company Number: None

PATIENT
  Age: 65 Year
  Sex: Male
  Weight: 72.1219 kg

DRUGS (4)
  1. LORAZEPAM [Suspect]
     Indication: ANXIETY
     Dosage: 1 MG TID ORAL
     Route: 048
     Dates: start: 20080222
  2. LORAZEPAM [Suspect]
     Indication: ANXIETY
     Dosage: 1 MG TID ORAL
     Route: 048
     Dates: start: 20080322
  3. CITALOPRAM HYDROBROMIDE [Concomitant]
  4. PANTOPRAZOLE SODIUM [Concomitant]

REACTIONS (6)
  - BLOOD TESTOSTERONE DECREASED [None]
  - COMPLETED SUICIDE [None]
  - DEPRESSION [None]
  - DRUG INEFFECTIVE [None]
  - GASTROINTESTINAL DISORDER [None]
  - MENTAL DISORDER [None]
